FAERS Safety Report 25437517 (Version 1)
Quarter: 2025Q2

REPORT INFORMATION
  Report Type: Spontaneous
  Country: PL (occurrence: PL)
  Receive Date: 20250616
  Receipt Date: 20250616
  Transmission Date: 20250717
  Serious: Yes (Life-Threatening, Hospitalization)
  Sender: JAZZ
  Company Number: PL-JAZZ PHARMACEUTICALS-2025-PL-014648

PATIENT

DRUGS (1)
  1. VYXEOS [Suspect]
     Active Substance: CYTARABINE\DAUNORUBICIN
     Indication: Acute myeloid leukaemia

REACTIONS (6)
  - Pneumonia [Unknown]
  - Septic shock [Unknown]
  - Upper gastrointestinal haemorrhage [Unknown]
  - Candida infection [Unknown]
  - Cholestasis [Unknown]
  - COVID-19 [Unknown]
